FAERS Safety Report 15202144 (Version 6)
Quarter: 2019Q3

REPORT INFORMATION
  Report Type: Report from Study
  Country: US (occurrence: US)
  Receive Date: 20180726
  Receipt Date: 20190703
  Transmission Date: 20191004
  Serious: Yes (Hospitalization, Other)
  Sender: FDA-Public Use
  Company Number: PHEH2018US030401

PATIENT
  Age: 73 Year
  Sex: Female
  Weight: 126 kg

DRUGS (3)
  1. ENTRESTO [Suspect]
     Active Substance: SACUBITRIL\VALSARTAN
     Dosage: 50 MG, (24/26MG) BID
     Route: 065
  2. ENTRESTO [Suspect]
     Active Substance: SACUBITRIL\VALSARTAN
     Indication: CARDIAC FAILURE
     Dosage: UNK UNK, BID
     Route: 048
     Dates: start: 201701
  3. ENTRESTO [Suspect]
     Active Substance: SACUBITRIL\VALSARTAN
     Indication: CARDIOMYOPATHY
     Dosage: 200 MG, (97/103MG) BID
     Route: 065

REACTIONS (8)
  - Balance disorder [Unknown]
  - Fall [Unknown]
  - Dizziness [Recovered/Resolved]
  - Limb injury [Unknown]
  - Hypotension [Recovered/Resolved]
  - Loss of consciousness [Unknown]
  - Joint injury [Unknown]
  - Hypotension [Unknown]

NARRATIVE: CASE EVENT DATE: 201805
